FAERS Safety Report 5512936-9 (Version None)
Quarter: 2007Q4

REPORT INFORMATION
  Report Type: 
  Country: None (occurrence: None)
  Receive Date: 20071112
  Receipt Date: 20071106
  Transmission Date: 20080405
  Serious: Yes (Hospitalization)
  Sender: FDA-Public Use
  Company Number: FR-BRISTOL-MYERS SQUIBB COMPANY-13974514

PATIENT
  Age: 54 Year
  Sex: Female

DRUGS (3)
  1. TAXOL [Suspect]
     Indication: BREAST CANCER METASTATIC
     Dosage: 170MG\COURSE ON DAY1, DAY8, DAY15 STARTING 03-JUL-07 TO 28-AUG-07
     Dates: start: 20070801, end: 20070815
  2. AVASTIN [Suspect]
     Indication: BREAST CANCER METASTATIC
     Dosage: 950MG\COURSE ON DAY 1 AND DAY 15 FROM 03-JUL-07 TO 15-AUG-2007
     Dates: start: 20070801, end: 20070815
  3. ARIMIDEX [Concomitant]
     Dates: start: 20070718

REACTIONS (2)
  - DYSPHAGIA [None]
  - DYSPHONIA [None]
